FAERS Safety Report 14529707 (Version 7)
Quarter: 2018Q2

REPORT INFORMATION
  Report Type: Spontaneous
  Country: HU (occurrence: HU)
  Receive Date: 20180214
  Receipt Date: 20180412
  Transmission Date: 20180711
  Serious: Yes (Life-Threatening, Hospitalization, Other)
  Sender: FDA-Public Use
  Company Number: HU-JNJFOC-20180208221

PATIENT
  Age: 39 Year
  Sex: Female
  Weight: 65 kg

DRUGS (13)
  1. DOXORUBICIN HYDROCHLORIDE. [Suspect]
     Active Substance: DOXORUBICIN HYDROCHLORIDE
     Indication: ACUTE MYELOID LEUKAEMIA
     Dosage: REINDUCTION BISHOP THERAPY
     Route: 042
     Dates: start: 201204
  2. AMOXICILLIN. [Suspect]
     Active Substance: AMOXICILLIN
     Indication: PRODUCT USED FOR UNKNOWN INDICATION
     Route: 065
     Dates: start: 20140129, end: 20140131
  3. ALEXAN 100 [Suspect]
     Active Substance: CYTARABINE
     Indication: ACUTE MYELOID LEUKAEMIA
     Route: 042
     Dates: start: 201203
  4. ALEXAN 100 [Suspect]
     Active Substance: CYTARABINE
     Indication: ACUTE MYELOID LEUKAEMIA
     Dosage: 2X5,5 G ON DAYS 1. 3. 5., REINDUCTION BISHOP THERAPY, HIGH DOSE
     Route: 042
     Dates: start: 201204
  5. FLUDARABINE PHOSPHATE. [Suspect]
     Active Substance: FLUDARABINE PHOSPHATE
     Indication: ACUTE MYELOID LEUKAEMIA
     Dosage: FLAG-IDA
     Route: 042
     Dates: start: 20140129, end: 20140131
  6. ALEXAN 100 [Suspect]
     Active Substance: CYTARABINE
     Indication: ACUTE MYELOID LEUKAEMIA
     Dosage: 2X5.4 G ON THE DAYS 1,3,5 AS CONSOLIDATION, HIGH DOSE, HDA
     Route: 042
     Dates: start: 201205
  7. ALEXAN 100 [Suspect]
     Active Substance: CYTARABINE
     Indication: ACUTE MYELOID LEUKAEMIA
     Dosage: 3.4 G ON DAYS 1-5, FLAG-IDA
     Route: 042
     Dates: start: 20140129, end: 20140131
  8. G-CSF [Concomitant]
     Active Substance: GRANULOCYTE COLONY-STIMULATING FACTOR NOS
     Indication: ACUTE MYELOID LEUKAEMIA
     Route: 065
     Dates: start: 201401
  9. MILURIT [Concomitant]
     Active Substance: ALLOPURINOL
     Route: 065
     Dates: start: 20140129
  10. SUMETROLIM [Concomitant]
     Active Substance: SULFAMETHOXAZOLE\TRIMETHOPRIM
     Route: 049
     Dates: start: 20140129, end: 20140131
  11. ZAVEDOS [Concomitant]
     Active Substance: IDARUBICIN
     Indication: ACUTE MYELOID LEUKAEMIA
     Dosage: FLAG-IDA
     Route: 042
     Dates: start: 20140129, end: 20140131
  12. DAUNOBLASTINA [Concomitant]
     Active Substance: DAUNORUBICIN
     Indication: ACUTE MYELOID LEUKAEMIA
     Dosage: AS INDUCTION THERAPY 7 PLUS 3, FOR 3 DAYS
     Route: 042
     Dates: start: 201203
  13. ACICLOVIR [Concomitant]
     Active Substance: ACYCLOVIR
     Route: 049
     Dates: start: 20140129, end: 20140131

REACTIONS (9)
  - Product use in unapproved indication [Unknown]
  - Off label use [Unknown]
  - Acute myeloid leukaemia recurrent [Unknown]
  - Tumour lysis syndrome [Recovered/Resolved]
  - Febrile neutropenia [Recovered/Resolved]
  - Bronchopulmonary aspergillosis [Unknown]
  - Pneumonia [Recovered/Resolved]
  - Pyrexia [Unknown]
  - Respiratory failure [Recovered/Resolved]

NARRATIVE: CASE EVENT DATE: 20120416
